FAERS Safety Report 9736686 (Version 1)
Quarter: 2013Q4

REPORT INFORMATION
  Report Type: Spontaneous
  Country: US (occurrence: US)
  Receive Date: 20131206
  Receipt Date: 20131206
  Transmission Date: 20140711
  Serious: No
  Sender: FDA-Public Use
  Company Number: US-GILEAD-2009-0023462

PATIENT
  Age: 86 Year
  Sex: Male
  Weight: 118.2 kg

DRUGS (13)
  1. LETAIRIS [Suspect]
     Indication: PULMONARY ARTERIAL HYPERTENSION
     Route: 048
     Dates: start: 20090112
  2. REVATIO [Concomitant]
  3. INDERAL [Concomitant]
  4. PREDNISONE [Concomitant]
  5. LOMOTIL [Concomitant]
  6. SYNTHROID [Concomitant]
  7. PROVENTIL AER HFA [Concomitant]
  8. ALLEGRA [Concomitant]
  9. SYMBICORT AER [Concomitant]
  10. NEXIUM [Concomitant]
  11. BACTRIM DS [Concomitant]
  12. PLAVIX [Concomitant]
  13. BABY ASPIRIN [Concomitant]

REACTIONS (4)
  - Diarrhoea [Recovering/Resolving]
  - Fatigue [Recovering/Resolving]
  - Dyspnoea [Not Recovered/Not Resolved]
  - Drug ineffective [Not Recovered/Not Resolved]
